FAERS Safety Report 7893129-7 (Version None)
Quarter: 2011Q4

REPORT INFORMATION
  Report Type: 
  Country: None (occurrence: None)
  Receive Date: 20111104
  Receipt Date: 20111026
  Transmission Date: 20120403
  Serious: Yes (Other)
  Sender: FDA-Public Use
  Company Number: US-ABBOTT-11P-163-0868899-00

PATIENT
  Sex: Female
  Weight: 56.75 kg

DRUGS (5)
  1. METHOTREXATE [Concomitant]
     Indication: RHEUMATOID ARTHRITIS
     Dosage: 2.5MG X 4 PILLS EVERY FRIDAY
     Dates: start: 20100101
  2. FOLIC ACID [Concomitant]
     Indication: RHEUMATOID ARTHRITIS
     Dates: start: 20100101
  3. HUMIRA [Suspect]
     Indication: RHEUMATOID ARTHRITIS
     Dates: start: 20090101, end: 20110601
  4. HUMIRA [Suspect]
     Dates: start: 20110701, end: 20110701
  5. HUMIRA [Suspect]
     Dates: start: 20110801

REACTIONS (5)
  - FOOT DEFORMITY [None]
  - ARTHRALGIA [None]
  - TOOTHACHE [None]
  - CHONDROPATHY [None]
  - TOOTH ABSCESS [None]
